FAERS Safety Report 10028236 (Version 1)
Quarter: 2014Q1

REPORT INFORMATION
  Report Type: Spontaneous
  Country: GB (occurrence: GB)
  Receive Date: 20140321
  Receipt Date: 20140321
  Transmission Date: 20141002
  Serious: Yes (Other)
  Sender: FDA-Public Use
  Company Number: 2014SP001621

PATIENT
  Age: 40 Year
  Sex: Male

DRUGS (4)
  1. VANCOMYCIN [Suspect]
     Indication: ENDOCARDITIS STAPHYLOCOCCAL
     Dates: start: 201002, end: 201010
  2. RIFAMPICIN [Suspect]
     Indication: ENDOCARDITIS STAPHYLOCOCCAL
     Dates: start: 201002, end: 201109
  3. CUBICIN [Suspect]
     Indication: ENDOCARDITIS STAPHYLOCOCCAL
     Dates: start: 201008, end: 201010
  4. CUBICIN [Suspect]
     Indication: ENDOCARDITIS STAPHYLOCOCCAL
     Dates: start: 201010, end: 201106

REACTIONS (5)
  - No therapeutic response [Unknown]
  - Endocarditis staphylococcal [Recovered/Resolved]
  - Staphylococcal bacteraemia [Recovered/Resolved]
  - Embolism [Recovering/Resolving]
  - Cardiac valve vegetation [Recovering/Resolving]
